FAERS Safety Report 8318586-3 (Version None)
Quarter: 2012Q2

REPORT INFORMATION
  Report Type: 
  Country: None (occurrence: None)
  Receive Date: 20120427
  Receipt Date: 20120416
  Transmission Date: 20120825
  Serious: Yes (Hospitalization)
  Sender: FDA-Public Use
  Company Number: FR-FRI-1000030051

PATIENT
  Age: 81 Year
  Sex: Female

DRUGS (3)
  1. ESCITALOPRAM [Suspect]
     Indication: DEPRESSION
     Dosage: 10 MG
     Route: 048
     Dates: start: 20120123, end: 20120130
  2. NEXIUM [Suspect]
     Indication: GASTRITIS
     Dosage: 20 MG
     Route: 048
     Dates: start: 20120128, end: 20120131
  3. IRBESARTAN + HYDROCHLOROTHIAZIDE [Suspect]
     Indication: HYPERTENSION
     Dosage: 150 MG/12.5 MG DAILY
     Route: 048
     Dates: start: 20110801, end: 20120131

REACTIONS (2)
  - HYPONATRAEMIA [None]
  - HYPONATRAEMIC ENCEPHALOPATHY [None]
